FAERS Safety Report 7214715-3 (Version None)
Quarter: 2011Q1

REPORT INFORMATION
  Report Type: 
  Country: None (occurrence: None)
  Receive Date: 20110107
  Receipt Date: 20091215
  Transmission Date: 20110831
  Serious: No
  Sender: FDA-Public Use
  Company Number: A0835177A

PATIENT
  Age: 69 Year
  Sex: Female

DRUGS (5)
  1. SYNTHROID [Concomitant]
  2. INSULIN [Concomitant]
  3. BENADRYL [Concomitant]
  4. LOVAZA [Suspect]
     Indication: BLOOD CHOLESTEROL INCREASED
     Dosage: 4G PER DAY
     Route: 048
     Dates: start: 20091021, end: 20091210
  5. PLAVIX [Concomitant]

REACTIONS (2)
  - DYSPNOEA [None]
  - RASH MACULAR [None]
